FAERS Safety Report 6403289-2 (Version None)
Quarter: 2009Q4

REPORT INFORMATION
  Report Type: 
  Country: None (occurrence: None)
  Receive Date: 20091013
  Receipt Date: 20091002
  Transmission Date: 20100525
  Serious: Yes (Hospitalization)
  Sender: FDA-Public Use
  Company Number: GXKR2009FR11101

PATIENT
  Age: 32 Year
  Sex: Male

DRUGS (4)
  1. DIAZEPAM [Suspect]
  2. ZOPICLONE (NGX)(ZOPICLONE) [Suspect]
  3. LITHIUM (LITHIUM) TABLET [Suspect]
     Dosage: 20 DF
  4. ALCOHOL (ETHANOL) [Suspect]

REACTIONS (6)
  - BRADYPHRENIA [None]
  - MULTIPLE DRUG OVERDOSE INTENTIONAL [None]
  - SUICIDE ATTEMPT [None]
  - TACHYCARDIA [None]
  - THERAPEUTIC AGENT TOXICITY [None]
  - VOMITING [None]
